FAERS Safety Report 17754172 (Version 1)
Quarter: 2020Q2

REPORT INFORMATION
  Report Type: Spontaneous
  Country: BR (occurrence: BR)
  Receive Date: 20200507
  Receipt Date: 20200507
  Transmission Date: 20200714
  Serious: Yes (Disabling, Other)
  Sender: FDA-Public Use
  Company Number: BR-NOVEN PHARMACEUTICALS, INC.-BR2020000326

PATIENT

DRUGS (1)
  1. ESTRADIOL/NORETHISTERONE ACETATE [Suspect]
     Active Substance: ESTRADIOL\NORETHINDRONE ACETATE
     Indication: PRODUCT USED FOR UNKNOWN INDICATION
     Dosage: 50/150 MCG, UNKNOWN
     Route: 065

REACTIONS (6)
  - Helminthic infection [Recovering/Resolving]
  - Gastrointestinal disorder [Recovering/Resolving]
  - Nervousness [Recovering/Resolving]
  - Bladder disorder [Recovering/Resolving]
  - Diarrhoea [Recovering/Resolving]
  - Boredom [Recovering/Resolving]

NARRATIVE: CASE EVENT DATE: 202004
